FAERS Safety Report 23891176 (Version 1)
Quarter: 2024Q2

REPORT INFORMATION
  Report Type: Spontaneous
  Country: CN (occurrence: CN)
  Receive Date: 20240523
  Receipt Date: 20240523
  Transmission Date: 20240716
  Serious: Yes (Hospitalization)
  Sender: FDA-Public Use
  Company Number: CN-Merck Healthcare KGaA-2024026316

PATIENT
  Age: 52 Year
  Sex: Male
  Weight: 48 kg

DRUGS (6)
  1. ERBITUX [Suspect]
     Active Substance: CETUXIMAB
     Indication: Tonsil cancer
     Dosage: 0.7 G, OTHER (EVERY 21 DAYS)
     Route: 041
     Dates: start: 20240426, end: 20240426
  2. METHOTREXATE [Suspect]
     Active Substance: METHOTREXATE
     Indication: Tonsil cancer
     Dosage: 0.65 G, DAILY
     Route: 041
     Dates: start: 20240426, end: 20240426
  3. BLEOMYCIN HYDROCHLORIDE [Suspect]
     Active Substance: BLEOMYCIN HYDROCHLORIDE
     Indication: Tonsil cancer
     Dosage: 15 MG, DAILY
     Route: 041
     Dates: start: 20240426, end: 20240426
  4. PACLITAXEL [Concomitant]
     Active Substance: PACLITAXEL
     Indication: Tonsil cancer
     Dosage: 0.35 G, UNKNOWN
     Dates: start: 20240403
  5. TISLELIZUMAB [Concomitant]
     Active Substance: TISLELIZUMAB
     Indication: Tonsil cancer
     Dosage: 200 MG, OTHER (EVERY 21 DAYS)
     Dates: start: 20240403
  6. APATINIB [Concomitant]
     Active Substance: APATINIB
     Indication: Tonsil cancer
     Dosage: UNK, CYCLICAL
     Dates: start: 20240403

REACTIONS (1)
  - Myelosuppression [Recovering/Resolving]

NARRATIVE: CASE EVENT DATE: 20240509
